FAERS Safety Report 9333450 (Version 1)
Quarter: 2013Q2

REPORT INFORMATION
  Report Type: Spontaneous
  Country: NL (occurrence: NL)
  Receive Date: 20130606
  Receipt Date: 20130606
  Transmission Date: 20140414
  Serious: Yes (Other)
  Sender: FDA-Public Use
  Company Number: NL-TEVA-408475ISR

PATIENT
  Age: 51 Year
  Sex: Female

DRUGS (10)
  1. TAMOXIFEN TABLET 20MG [Suspect]
     Indication: NEOPLASM MALIGNANT
     Dosage: 20 MILLIGRAM DAILY;
     Route: 048
     Dates: start: 20120601
  2. ZOLADEX IMPLANTATIESTIFT 10,8MG IN WWSP [Suspect]
     Indication: NEOPLASM MALIGNANT
     Route: 030
     Dates: start: 20120601
  3. ZOLPIDEM TABLET FO 10MG [Concomitant]
     Dosage: 10 MILLIGRAM DAILY; START DATE UNKNOWN
     Route: 048
  4. OMEPRAZOL CAPSULE MSR 20MG [Concomitant]
     Dosage: 20 MILLIGRAM DAILY; START DATE UNKNOWN
     Route: 048
  5. MAGNESIUMHYDROXIDE KAUWTABLET 724MG [Concomitant]
     Dosage: 3 DD 2. START DATE UNKNOWN
     Route: 048
  6. IBUPROFEN BRUISGRANULAAT 600MG [Concomitant]
     Dosage: 1-3 TIMES DAILY IF NEEDED.  START DATE UNKNOWN
     Route: 048
  7. SOTALOL TABLET  80MG [Concomitant]
     Dosage: 80 MILLIGRAM DAILY; START DATE UNKNOWN
     Route: 048
  8. CLONIDINE TABLET 0,025MG [Concomitant]
     Dosage: 2 DD 3.  START DATE UNKNOWN
     Route: 048
  9. TRAMADOL BRUISTABLET 50MG [Concomitant]
     Dosage: 150 MILLIGRAM DAILY;
     Route: 048
  10. MACROGOL/ZOUTEN PDR V DRANK (MOVICOLON+GENERIEK) [Concomitant]
     Dosage: 1 DOSAGE FORMS DAILY; START DATE UNKNOWN
     Route: 048

REACTIONS (1)
  - Ehlers-Danlos syndrome [Not Recovered/Not Resolved]
